FAERS Safety Report 21230990 (Version 1)
Quarter: 2022Q3

REPORT INFORMATION
  Report Type: Spontaneous
  Country: GB (occurrence: GB)
  Receive Date: 20220819
  Receipt Date: 20220819
  Transmission Date: 20221026
  Serious: Yes (Other)
  Sender: FDA-Public Use
  Company Number: None

PATIENT
  Age: 1 Year
  Sex: Male

DRUGS (1)
  1. MONTELUKAST SODIUM [Suspect]
     Active Substance: MONTELUKAST SODIUM
     Indication: Adverse drug reaction
     Dosage: 4MG ONCE AT NIGHT
     Dates: start: 2018

REACTIONS (2)
  - Medication error [Unknown]
  - Abnormal behaviour [Not Recovered/Not Resolved]

NARRATIVE: CASE EVENT DATE: 20180101
